FAERS Safety Report 9889755 (Version 2)
Quarter: 2014Q1

REPORT INFORMATION
  Report Type: Spontaneous
  Country: US (occurrence: US)
  Receive Date: 20140211
  Receipt Date: 20140313
  Transmission Date: 20141002
  Serious: No
  Sender: FDA-Public Use
  Company Number: US-US-EMD SERONO, INC.-7268363

PATIENT
  Age: 28 Year
  Sex: Female

DRUGS (2)
  1. REBIF [Suspect]
     Indication: PRODUCT USED FOR UNKNOWN INDICATION
  2. REBIF [Suspect]

REACTIONS (7)
  - Injection site bruising [Recovered/Resolved]
  - Injection site urticaria [Recovered/Resolved]
  - Injection site pain [Recovered/Resolved]
  - Injection site pain [Recovered/Resolved]
  - Injection site erythema [Recovered/Resolved]
  - Normal newborn [Recovered/Resolved]
  - Maternal exposure timing unspecified [Recovered/Resolved]
